FAERS Safety Report 10829921 (Version 1)
Quarter: 2015Q1

REPORT INFORMATION
  Report Type: Report from Study
  Country: US (occurrence: US)
  Receive Date: 20150219
  Receipt Date: 20150219
  Transmission Date: 20150721
  Serious: No
  Sender: FDA-Public Use
  Company Number: US-ABBVIE-14P-163-1189282-00

PATIENT
  Age: 65 Year
  Sex: Female

DRUGS (8)
  1. LYRICA [Concomitant]
     Active Substance: PREGABALIN
     Indication: FIBROMYALGIA
  2. FOLIC ACID. [Concomitant]
     Active Substance: FOLIC ACID
     Indication: PRODUCT USED FOR UNKNOWN INDICATION
  3. TRAZODONE [Concomitant]
     Active Substance: TRAZODONE HYDROCHLORIDE
     Indication: INSOMNIA
  4. METHOTREXATE [Concomitant]
     Active Substance: METHOTREXATE
     Indication: RHEUMATOID ARTHRITIS
     Dosage: SIX PILLS WEEKLY
  5. OMEPRAZOLE. [Concomitant]
     Active Substance: OMEPRAZOLE
     Indication: GASTROOESOPHAGEAL REFLUX DISEASE
  6. PREDNISONE. [Concomitant]
     Active Substance: PREDNISONE
     Indication: RHEUMATOID ARTHRITIS
  7. CELEBREX [Concomitant]
     Active Substance: CELECOXIB
     Indication: ARTHRALGIA
  8. HUMIRA [Suspect]
     Active Substance: ADALIMUMAB
     Indication: RHEUMATOID ARTHRITIS
     Dates: start: 20131219

REACTIONS (6)
  - Musculoskeletal stiffness [Not Recovered/Not Resolved]
  - Abdominal pain upper [Not Recovered/Not Resolved]
  - Muscle twitching [Recovered/Resolved]
  - Arthralgia [Recovered/Resolved]
  - Emotional disorder [Recovered/Resolved]
  - Tachyphrenia [Recovered/Resolved]

NARRATIVE: CASE EVENT DATE: 20131223
